FAERS Safety Report 9310193 (Version 2)
Quarter: 2013Q2

REPORT INFORMATION
  Report Type: Spontaneous
  Country: CN (occurrence: CN)
  Receive Date: 20130527
  Receipt Date: 20130606
  Transmission Date: 20140414
  Serious: Yes (Other)
  Sender: FDA-Public Use
  Company Number: CN-009507513-1305CHN012551

PATIENT
  Age: 74 Year
  Sex: Female
  Weight: 46.5 kg

DRUGS (1)
  1. TIENAM [Suspect]
     Indication: INFECTION
     Dosage: UNK, BID
     Route: 041
     Dates: start: 20120726, end: 20120727

REACTIONS (1)
  - Delirium [Recovering/Resolving]
